FAERS Safety Report 8089479-4 (Version None)
Quarter: 2012Q1

REPORT INFORMATION
  Report Type: 
  Country: None (occurrence: None)
  Receive Date: 20120128
  Receipt Date: 20110711
  Transmission Date: 20120608
  Serious: No
  Sender: FDA-Public Use
  Company Number: US-ABBOTT-11P-163-0838403-00

PATIENT
  Weight: 55.388 kg

DRUGS (3)
  1. HUMIRA [Suspect]
     Dates: start: 20110622
  2. SYNTHROID [Concomitant]
     Indication: PRODUCT USED FOR UNKNOWN INDICATION
  3. HUMIRA [Suspect]
     Indication: RHEUMATOID ARTHRITIS
     Dates: end: 20080101

REACTIONS (4)
  - PAIN [None]
  - CHEST DISCOMFORT [None]
  - FATIGUE [None]
  - ARTHRALGIA [None]
